FAERS Safety Report 23347319 (Version 1)
Quarter: 2023Q4

REPORT INFORMATION
  Report Type: Report from Study
  Country: IN (occurrence: IN)
  Receive Date: 20231228
  Receipt Date: 20231228
  Transmission Date: 20240110
  Serious: Yes (Other)
  Sender: FDA-Public Use
  Company Number: IN-TAKEDA-2023TUS060255

PATIENT
  Age: 46 Year
  Sex: Female

DRUGS (1)
  1. VEDOLIZUMAB [Suspect]
     Active Substance: VEDOLIZUMAB
     Indication: Crohn^s disease
     Dosage: 300 MILLIGRAM
     Route: 042

REACTIONS (2)
  - Cardiac failure [Unknown]
  - Blood pressure decreased [Unknown]
